FAERS Safety Report 10260773 (Version 2)
Quarter: 2016Q2

REPORT INFORMATION
  Report Type: Spontaneous
  Country: CA (occurrence: CA)
  Receive Date: 20140626
  Receipt Date: 20160411
  Transmission Date: 20160815
  Serious: Yes (Other)
  Sender: FDA-Public Use
  Company Number: CA-AMGEN-CANSP2014047318

PATIENT
  Age: 54 Year
  Sex: Female

DRUGS (4)
  1. ENBREL [Suspect]
     Active Substance: ETANERCEPT
     Indication: PRODUCT USED FOR UNKNOWN INDICATION
     Dosage: UNK
     Route: 058
     Dates: start: 2006
  2. DICLOFENAC [Concomitant]
     Active Substance: DICLOFENAC
     Dosage: UNK
  3. SIMPONI [Concomitant]
     Active Substance: GOLIMUMAB
     Dosage: UNK
  4. METHOTREXATE (METHOTREXATE SODIUM) [Suspect]
     Active Substance: METHOTREXATE SODIUM
     Indication: RHEUMATOID ARTHRITIS
     Dosage: UNK
     Route: 065

REACTIONS (4)
  - Diverticulitis [Not Recovered/Not Resolved]
  - Cystitis [Unknown]
  - Abdominal adhesions [Not Recovered/Not Resolved]
  - Fungal infection [Recovered/Resolved]

NARRATIVE: CASE EVENT DATE: 2006
